FAERS Safety Report 13180096 (Version 2)
Quarter: 2018Q1

REPORT INFORMATION
  Report Type: Spontaneous
  Country: US (occurrence: US)
  Receive Date: 20170202
  Receipt Date: 20180122
  Transmission Date: 20180508
  Serious: No
  Sender: FDA-Public Use
  Company Number: US-BAYER-2017-016429

PATIENT
  Sex: Male

DRUGS (1)
  1. CHLOR-TRIMETON 12 HOUR [Suspect]
     Active Substance: CHLORPHENIRAMINE MALEATE
     Indication: HYPERSENSITIVITY
     Dosage: 1 DF, UNK
     Route: 048

REACTIONS (2)
  - Product prescribing issue [None]
  - Product use in unapproved indication [Unknown]
